FAERS Safety Report 14085588 (Version 2)
Quarter: 2017Q4

REPORT INFORMATION
  Report Type: Spontaneous
  Country: US (occurrence: US)
  Receive Date: 20171013
  Receipt Date: 20171019
  Transmission Date: 20180321
  Serious: Yes (Hospitalization, Other)
  Sender: FDA-Public Use
  Company Number: US-JNJFOC-20171004555

PATIENT
  Age: 38 Year
  Sex: Female

DRUGS (2)
  1. IMODIUM [Suspect]
     Active Substance: LOPERAMIDE HYDROCHLORIDE
     Indication: EUPHORIC MOOD
     Route: 065
  2. IMODIUM [Suspect]
     Active Substance: LOPERAMIDE HYDROCHLORIDE
     Route: 065

REACTIONS (29)
  - Atrial fibrillation [Unknown]
  - Malaise [Recovering/Resolving]
  - Dizziness [Recovering/Resolving]
  - Nausea [Recovered/Resolved]
  - Anxiety [Recovered/Resolved]
  - Arthralgia [Recovered/Resolved]
  - Rhinorrhoea [Recovered/Resolved]
  - Vomiting [Recovering/Resolving]
  - Restless legs syndrome [Recovering/Resolving]
  - Irritability [Recovering/Resolving]
  - Constipation [Recovering/Resolving]
  - Electrocardiogram QT prolonged [Unknown]
  - Hyperhidrosis [Recovered/Resolved]
  - Pain [Recovering/Resolving]
  - Tachycardia [Recovering/Resolving]
  - Abdominal pain [Recovered/Resolved]
  - Drug tolerance [Recovering/Resolving]
  - Drug use disorder [Unknown]
  - Restlessness [Recovered/Resolved]
  - Tremor [Recovering/Resolving]
  - Feeling guilty [Recovering/Resolving]
  - Insomnia [Recovering/Resolving]
  - Drug withdrawal syndrome [Recovering/Resolving]
  - Decreased appetite [Recovering/Resolving]
  - Muscle spasms [Recovering/Resolving]
  - Mydriasis [Recovering/Resolving]
  - Dysphoria [Recovering/Resolving]
  - Yawning [Recovered/Resolved]
  - Intentional overdose [Recovering/Resolving]
